FAERS Safety Report 5726063-9 (Version None)
Quarter: 2008Q2

REPORT INFORMATION
  Report Type: 
  Country: None (occurrence: None)
  Receive Date: 20080501
  Receipt Date: 20080501
  Transmission Date: 20081010
  Serious: Yes (Hospitalization, Disabling, Other)
  Sender: FDA-Public Use
  Company Number: None

PATIENT
  Age: 64 Year
  Sex: Female
  Weight: 61.2356 kg

DRUGS (2)
  1. ACTONEL [Suspect]
     Indication: OSTEOPENIA
     Dosage: 1 - 35 MG 1X/WEEK
     Dates: start: 20080108, end: 20080108
  2. ACTONEL [Suspect]
     Indication: OSTEOPENIA
     Dosage: 1 - 35 MG 1X/WEEK
     Dates: start: 20080420, end: 20080420

REACTIONS (9)
  - ABDOMINAL PAIN UPPER [None]
  - ARTHRALGIA [None]
  - BODY TEMPERATURE INCREASED [None]
  - DEHYDRATION [None]
  - FEELING ABNORMAL [None]
  - MALAISE [None]
  - MYALGIA [None]
  - NAUSEA [None]
  - VOMITING [None]
